FAERS Safety Report 10075859 (Version 1)
Quarter: 2014Q2

REPORT INFORMATION
  Report Type: Spontaneous
  Country: US (occurrence: US)
  Receive Date: 20140414
  Receipt Date: 20140414
  Transmission Date: 20141212
  Serious: Yes (Other)
  Sender: FDA-Public Use
  Company Number: US-PFIZER INC-2014099462

PATIENT
  Age: 53 Year
  Sex: Female

DRUGS (8)
  1. ADRIAMYCIN [Suspect]
     Indication: NON-HODGKIN^S LYMPHOMA
     Dosage: 4 COMPLETE CYCLES
  2. VINCRISTINE [Suspect]
     Indication: NON-HODGKIN^S LYMPHOMA
     Dosage: 4 COMPLETE CYCLES
  3. CYCLOSPORINE [Suspect]
     Indication: NON-HODGKIN^S LYMPHOMA
     Dosage: 4 COMPLETE CYCLES
  4. DEXAMETHASONE [Suspect]
     Indication: NON-HODGKIN^S LYMPHOMA
     Dosage: 4 COMPLETE CYCLES
  5. PURINETHOL [Concomitant]
  6. ONCOVIN [Concomitant]
  7. METHOTREXATE [Concomitant]
     Dosage: UNK
  8. PREDNISONE [Concomitant]
     Dosage: UNK

REACTIONS (3)
  - Second primary malignancy [Unknown]
  - Epstein-Barr virus associated lymphoma [Unknown]
  - Immunosuppression [Unknown]
